FAERS Safety Report 13093848 (Version 1)
Quarter: 2017Q1

REPORT INFORMATION
  Report Type: Spontaneous
  Country: US (occurrence: US)
  Receive Date: 20170106
  Receipt Date: 20170106
  Transmission Date: 20170428
  Serious: No
  Sender: FDA-Public Use
  Company Number: PHEH2017US000596

PATIENT
  Sex: Male

DRUGS (2)
  1. EVEROLIMUS [Suspect]
     Active Substance: EVEROLIMUS
     Indication: PRODUCT USED FOR UNKNOWN INDICATION
     Route: 065
  2. LENVATINIB [Suspect]
     Active Substance: LENVATINIB
     Indication: PRODUCT USED FOR UNKNOWN INDICATION
     Route: 065

REACTIONS (4)
  - Nausea [Recovered/Resolved]
  - Vomiting [Recovered/Resolved]
  - Blood creatinine increased [Recovered/Resolved]
  - Renal disorder [Recovered/Resolved]
